FAERS Safety Report 9104427 (Version 2)
Quarter: 2013Q3

REPORT INFORMATION
  Report Type: Report from Study
  Country: BR (occurrence: BR)
  Receive Date: 20130219
  Receipt Date: 20130722
  Transmission Date: 20140515
  Serious: Yes (Hospitalization, Other)
  Sender: FDA-Public Use
  Company Number: BR-ROCHE-1192397

PATIENT
  Sex: Female

DRUGS (1)
  1. MABTHERA [Suspect]
     Indication: RHEUMATOID ARTHRITIS
     Route: 065
     Dates: start: 20110301

REACTIONS (5)
  - Immunodeficiency [Not Recovered/Not Resolved]
  - Dyspnoea [Unknown]
  - Tooth disorder [Recovered/Resolved]
  - Dry mouth [Not Recovered/Not Resolved]
  - Lung disorder [Not Recovered/Not Resolved]
